FAERS Safety Report 8573457-2 (Version None)
Quarter: 2012Q3

REPORT INFORMATION
  Report Type: 
  Country: None (occurrence: None)
  Receive Date: 20120806
  Receipt Date: 20120726
  Transmission Date: 20120928
  Serious: Yes (Hospitalization, Other)
  Sender: FDA-Public Use
  Company Number: US-ASTRAZENECA-2012SE42536

PATIENT
  Age: 60 Year
  Sex: Male

DRUGS (2)
  1. PREDNISONE [Suspect]
     Route: 065
  2. CRESTOR [Suspect]
     Route: 048

REACTIONS (12)
  - UPPER LIMB FRACTURE [None]
  - STAPHYLOCOCCAL INFECTION [None]
  - TREMOR [None]
  - SINGLE FUNCTIONAL KIDNEY [None]
  - RENAL FAILURE CHRONIC [None]
  - FALL [None]
  - JOINT SWELLING [None]
  - IRRITABLE BOWEL SYNDROME [None]
  - ACCIDENT AT WORK [None]
  - INSOMNIA [None]
  - KIDNEY PERFORATION [None]
  - DYSPHEMIA [None]
